FAERS Safety Report 10612348 (Version 2)
Quarter: 2014Q4

REPORT INFORMATION
  Report Type: Report from Study
  Country: CA (occurrence: CA)
  Receive Date: 20141127
  Receipt Date: 20141127
  Transmission Date: 20150529
  Serious: Yes (Hospitalization, Other)
  Sender: FDA-Public Use
  Company Number: CA-AMGEN-CANSP2013033260

PATIENT
  Age: 73 Year
  Sex: Male

DRUGS (22)
  1. METHOTREXATE (METHOTREXATE SODIUM) [Concomitant]
     Active Substance: METHOTREXATE SODIUM
     Dosage: 1 CC, QWK
  2. LISINOPRIL. [Concomitant]
     Active Substance: LISINOPRIL
     Dosage: 10 MG, TID
  3. TYLENOL ARTHRITIS PAIN [Concomitant]
     Active Substance: ACETAMINOPHEN
     Dosage: 2 TABLETS TWICE A DAY
  4. GLUCONORM                          /00082702/ [Concomitant]
     Dosage: UNK
  5. REPAGLINIDE. [Concomitant]
     Active Substance: REPAGLINIDE
     Dosage: 1 MG, UNK
  6. VITALUX                            /00322001/ [Concomitant]
     Dosage: UNK, BID
  7. ENBREL [Suspect]
     Active Substance: ETANERCEPT
     Indication: RHEUMATOID ARTHRITIS
     Dosage: 50 MG, QWK
     Route: 065
     Dates: start: 20121120
  8. ASA [Concomitant]
     Active Substance: ASPIRIN
     Dosage: 81 MG, QD
  9. VITAMIN D [Concomitant]
     Active Substance: CHOLECALCIFEROL
     Dosage: 1000 UNIT, QD
  10. ROSUVASTATIN [Concomitant]
     Active Substance: ROSUVASTATIN
     Dosage: 10 MG, QD
  11. METFORMIN [Concomitant]
     Active Substance: METFORMIN HYDROCHLORIDE
     Dosage: 500 MG, QD
  12. CALCIUM [Concomitant]
     Active Substance: CALCIUM
     Dosage: 650 MG, UNK
  13. BUTRANS [Concomitant]
     Active Substance: BUPRENORPHINE
     Dosage: 10 MUG, QWK
  14. ESTER C                            /00008001/ [Concomitant]
     Dosage: 1000 MG, QD
  15. GRAPE SEED                         /01364603/ [Concomitant]
     Dosage: 100 MG, BID
  16. VITAMIN C [Concomitant]
     Active Substance: ASCORBIC ACID
     Dosage: UNK
  17. GINSENG                            /01384001/ [Concomitant]
     Dosage: UNK, QD
  18. TYLENOL WITH CODEINE [Suspect]
     Active Substance: ACETAMINOPHEN\CODEINE PHOSPHATE
     Indication: PAIN
     Dosage: UNK
     Route: 065
  19. CALCIUM PLUS                       /06364601/ [Concomitant]
     Dosage: 6 MG, QD
  20. FOLIC ACID. [Concomitant]
     Active Substance: FOLIC ACID
     Dosage: 5 MG X4 TABS/DAY
  21. ARICEPT [Concomitant]
     Active Substance: DONEPEZIL HYDROCHLORIDE
     Dosage: 10 MG, QD
  22. VIT B COMPLEX [Concomitant]
     Dosage: UNK

REACTIONS (14)
  - Dysstasia [Not Recovered/Not Resolved]
  - Mobility decreased [Recovering/Resolving]
  - Constipation [Not Recovered/Not Resolved]
  - Gastrointestinal infection [Recovering/Resolving]
  - Muscular weakness [Not Recovered/Not Resolved]
  - Vomiting [Recovering/Resolving]
  - Rheumatoid arthritis [Not Recovered/Not Resolved]
  - Hypertonic bladder [Not Recovered/Not Resolved]
  - Atrioventricular block complete [Recovering/Resolving]
  - Activities of daily living impaired [Not Recovered/Not Resolved]
  - Spinal fusion surgery [Recovering/Resolving]
  - Pyrexia [Recovering/Resolving]
  - Balance disorder [Not Recovered/Not Resolved]
  - Pain [Recovering/Resolving]

NARRATIVE: CASE EVENT DATE: 20130409
